FAERS Safety Report 24595501 (Version 1)
Quarter: 2024Q4

REPORT INFORMATION
  Report Type: Spontaneous
  Country: JP (occurrence: None)
  Receive Date: 20241109
  Receipt Date: 20241109
  Transmission Date: 20250114
  Serious: Yes (Life-Threatening, Hospitalization, Other)
  Sender: ALEXION PHARMACEUTICALS
  Company Number: JP-ASTRAZENECA-240111597_013120_P_1

PATIENT
  Age: 49 Year
  Weight: 48 kg

DRUGS (36)
  1. DURVALUMAB [Suspect]
     Active Substance: DURVALUMAB
     Indication: Lung adenocarcinoma
  2. DURVALUMAB [Suspect]
     Active Substance: DURVALUMAB
  3. DURVALUMAB [Suspect]
     Active Substance: DURVALUMAB
  4. DURVALUMAB [Suspect]
     Active Substance: DURVALUMAB
  5. TREMELIMUMAB [Suspect]
     Active Substance: TREMELIMUMAB
     Indication: Lung adenocarcinoma
  6. TREMELIMUMAB [Suspect]
     Active Substance: TREMELIMUMAB
  7. TREMELIMUMAB [Suspect]
     Active Substance: TREMELIMUMAB
  8. TREMELIMUMAB [Suspect]
     Active Substance: TREMELIMUMAB
  9. CARBOPLATIN [Concomitant]
     Active Substance: CARBOPLATIN
     Indication: Lung adenocarcinoma
     Dosage: AUC5
  10. CARBOPLATIN [Concomitant]
     Active Substance: CARBOPLATIN
     Dosage: AUC5
  11. CARBOPLATIN [Concomitant]
     Active Substance: CARBOPLATIN
     Dosage: AUC5
  12. CARBOPLATIN [Concomitant]
     Active Substance: CARBOPLATIN
     Dosage: AUC5
  13. PEMETREXED [Concomitant]
     Active Substance: PEMETREXED
     Indication: Lung adenocarcinoma
     Dosage: DOSE UNKNOWN
  14. PEMETREXED [Concomitant]
     Active Substance: PEMETREXED
     Dosage: DOSE UNKNOWN
  15. PEMETREXED [Concomitant]
     Active Substance: PEMETREXED
     Dosage: DOSE UNKNOWN
  16. PEMETREXED [Concomitant]
     Active Substance: PEMETREXED
     Dosage: DOSE UNKNOWN
  17. LEVETIRACETAM [Concomitant]
     Active Substance: LEVETIRACETAM
     Dosage: DOSE UNKNOWN
  18. LEVETIRACETAM [Concomitant]
     Active Substance: LEVETIRACETAM
     Dosage: DOSE UNKNOWN
  19. LEVETIRACETAM [Concomitant]
     Active Substance: LEVETIRACETAM
     Dosage: DOSE UNKNOWN
  20. LEVETIRACETAM [Concomitant]
     Active Substance: LEVETIRACETAM
     Dosage: DOSE UNKNOWN
  21. DECADRON [Concomitant]
     Active Substance: DEXAMETHASONE
     Dosage: DOSE UNKNOWN
  22. DECADRON [Concomitant]
     Active Substance: DEXAMETHASONE
     Dosage: DOSE UNKNOWN
  23. DECADRON [Concomitant]
     Active Substance: DEXAMETHASONE
     Dosage: DOSE UNKNOWN
  24. DECADRON [Concomitant]
     Active Substance: DEXAMETHASONE
     Dosage: DOSE UNKNOWN
  25. SODIUM CHLORIDE [Concomitant]
     Active Substance: SODIUM CHLORIDE
     Dosage: DOSE UNKNOWN
  26. SODIUM CHLORIDE [Concomitant]
     Active Substance: SODIUM CHLORIDE
     Dosage: DOSE UNKNOWN
  27. SODIUM CHLORIDE [Concomitant]
     Active Substance: SODIUM CHLORIDE
     Dosage: DOSE UNKNOWN
  28. SODIUM CHLORIDE [Concomitant]
     Active Substance: SODIUM CHLORIDE
     Dosage: DOSE UNKNOWN
  29. VITAMINS [Concomitant]
     Active Substance: VITAMINS
     Dosage: DOSE UNKNOWN
  30. VITAMINS [Concomitant]
     Active Substance: VITAMINS
     Dosage: DOSE UNKNOWN
  31. VITAMINS [Concomitant]
     Active Substance: VITAMINS
     Dosage: DOSE UNKNOWN
  32. VITAMINS [Concomitant]
     Active Substance: VITAMINS
     Dosage: DOSE UNKNOWN
  33. ALLEGRA [Concomitant]
     Active Substance: FEXOFENADINE HYDROCHLORIDE
     Dosage: DOSE UNKNOWN
  34. ALLEGRA [Concomitant]
     Active Substance: FEXOFENADINE HYDROCHLORIDE
     Dosage: DOSE UNKNOWN
  35. ALLEGRA [Concomitant]
     Active Substance: FEXOFENADINE HYDROCHLORIDE
     Dosage: DOSE UNKNOWN
  36. ALLEGRA [Concomitant]
     Active Substance: FEXOFENADINE HYDROCHLORIDE
     Dosage: DOSE UNKNOWN

REACTIONS (2)
  - Cytokine release syndrome [Recovering/Resolving]
  - Enterocolitis [Unknown]
